FAERS Safety Report 7901852-0 (Version None)
Quarter: 2011Q4

REPORT INFORMATION
  Report Type: 
  Country: None (occurrence: None)
  Receive Date: 20111108
  Receipt Date: 20111104
  Transmission Date: 20120403
  Serious: No
  Sender: FDA-Public Use
  Company Number: US-TEVA-305185USA

PATIENT
  Sex: Female
  Weight: 49.486 kg

DRUGS (6)
  1. DIAZEPAM [Concomitant]
     Indication: INSOMNIA
     Route: 048
  2. UBIDECARENONE [Concomitant]
     Route: 048
  3. LOVASTATIN [Suspect]
     Dosage: 10 MILLIGRAM;
  4. AZILECT [Suspect]
     Indication: PARKINSON'S DISEASE
     Dosage: 0.5 MG DAILY
     Route: 048
     Dates: start: 20111003
  5. ACETYLSALICYLIC ACID SRT [Concomitant]
  6. ESTRADIOL [Concomitant]

REACTIONS (2)
  - MUSCLE SPASMS [None]
  - SOMNOLENCE [None]
